FAERS Safety Report 5527703-X (Version None)
Quarter: 2007Q4

REPORT INFORMATION
  Report Type: 
  Country: None (occurrence: None)
  Receive Date: 20071121
  Receipt Date: 20071107
  Transmission Date: 20080405
  Serious: Yes (Hospitalization)
  Sender: FDA-Public Use
  Company Number: S07-FRA-05952-01

PATIENT
  Age: 85 Year
  Sex: Male

DRUGS (8)
  1. MEMANTINE HCL [Suspect]
     Indication: DEMENTIA ALZHEIMER'S TYPE
     Dosage: 10 MG BID PO
     Route: 048
  2. DILTIAZEM HCL [Suspect]
     Dosage: 120 MG BID PO
     Route: 048
     Dates: end: 20070927
  3. IKOREL (NICORANDIL) [Suspect]
     Dosage: 10 MG BID PO
     Route: 048
     Dates: end: 20070927
  4. CRESTOR [Suspect]
     Dosage: 20 MG QD PO
     Route: 048
     Dates: end: 20070927
  5. FLUTICASONE PROPIONATE [Suspect]
     Dosage: 500 MCG BID IM
     Route: 030
     Dates: end: 20070927
  6. NITRIDERM TTS (GLYCERYL TRINITRATE) [Concomitant]
  7. ASPIRIN [Concomitant]
  8. PANTOPRAZOLE SODIUM [Concomitant]

REACTIONS (3)
  - ACUTE CORONARY SYNDROME [None]
  - ATRIOVENTRICULAR BLOCK COMPLETE [None]
  - ATRIOVENTRICULAR BLOCK SECOND DEGREE [None]
